FAERS Safety Report 23682518 (Version 1)
Quarter: 2024Q1

REPORT INFORMATION
  Report Type: Spontaneous
  Country: US (occurrence: US)
  Receive Date: 20240328
  Receipt Date: 20240328
  Transmission Date: 20240410
  Serious: No
  Sender: FDA-Public Use
  Company Number: US-ABBVIE-5686795

PATIENT
  Age: 78 Year
  Sex: Female
  Weight: 81.646 kg

DRUGS (6)
  1. ELUXADOLINE [Suspect]
     Active Substance: ELUXADOLINE
     Indication: Diarrhoea
     Dosage: FORM STRENGTH: 75 MILLIGRAM
     Route: 048
     Dates: start: 20240315
  2. OMEPRAZOLE [Concomitant]
     Active Substance: OMEPRAZOLE
     Indication: Gastrooesophageal reflux disease
  3. SIMVASTATIN [Concomitant]
     Active Substance: SIMVASTATIN
     Indication: Blood cholesterol abnormal
  4. SERTRALINE [Concomitant]
     Active Substance: SERTRALINE HYDROCHLORIDE
     Indication: Antidepressant therapy
  5. ATENOLOL\CHLORTHALIDONE [Concomitant]
     Active Substance: ATENOLOL\CHLORTHALIDONE
     Indication: Hypertension
  6. POTASSIUM [Concomitant]
     Active Substance: POTASSIUM
     Indication: Mineral supplementation

REACTIONS (1)
  - Constipation [Not Recovered/Not Resolved]

NARRATIVE: CASE EVENT DATE: 20240301
